FAERS Safety Report 5858069-3 (Version None)
Quarter: 2008Q3

REPORT INFORMATION
  Report Type: 
  Country: None (occurrence: None)
  Receive Date: 20080822
  Receipt Date: 20080808
  Transmission Date: 20090109
  Serious: Yes (Hospitalization)
  Sender: FDA-Public Use
  Company Number: IDA-00091

PATIENT
  Age: 55 Year
  Sex: Female

DRUGS (6)
  1. PROPRANOLOL [Suspect]
     Indication: OESOPHAGEAL VARICES HAEMORRHAGE
     Dosage: 160 MG DAILY / 160 MG DAILY / 160 MG DAILY ; 75 MG DAILY / 75 MG DAILY; PO
     Route: 048
  2. VENLAFAXINE HCL [Suspect]
     Indication: DEPRESSION
  3. PANTOPRAZOLE SODIUM [Concomitant]
  4. ALENDRONATE SODIUM [Concomitant]
  5. CALCIUM (CALCIUM) [Concomitant]
  6. COLECALCIFEROL (COLECALCIFEROL) [Concomitant]

REACTIONS (5)
  - ACUTE RESPIRATORY FAILURE [None]
  - DRUG INTERACTION [None]
  - OEDEMA PERIPHERAL [None]
  - PNEUMONIA MYCOPLASMAL [None]
  - PNEUMONITIS [None]
